FAERS Safety Report 12138437 (Version 4)
Quarter: 2016Q2

REPORT INFORMATION
  Report Type: Report from Study
  Country: JP (occurrence: JP)
  Receive Date: 20160302
  Receipt Date: 20160606
  Transmission Date: 20160815
  Serious: Yes (Death, Hospitalization, Other)
  Sender: FDA-Public Use
  Company Number: JP-OTSUKA-2016_004606AA

PATIENT
  Age: 63 Year
  Sex: Male
  Weight: 54.7 kg

DRUGS (55)
  1. MAINTATE [Concomitant]
     Active Substance: BISOPROLOL FUMARATE
     Indication: PRODUCT USED FOR UNKNOWN INDICATION
     Dosage: 2.5 MG, DAILY DOSE
     Route: 048
     Dates: start: 20150722, end: 20151206
  2. TRAZENTA [Concomitant]
     Active Substance: LINAGLIPTIN
     Indication: PRODUCT USED FOR UNKNOWN INDICATION
     Dosage: 5 MG, DAILY DOSE
     Route: 048
     Dates: end: 20151206
  3. DIFLUPREDNATE [Concomitant]
     Active Substance: DIFLUPREDNATE
     Indication: ECZEMA ASTEATOTIC
     Dosage: 0.5 G, DAILY DOSE
     Route: 061
     Dates: start: 20151013
  4. SAXIZON [Concomitant]
     Active Substance: HYDROCORTISONE SODIUM SUCCINATE
     Indication: FLUID RETENTION
     Dosage: 100 MG, DAILY DOSE
     Route: 042
     Dates: start: 20151111, end: 20151111
  5. ADONA (AC-17) [Concomitant]
     Indication: OESOPHAGEAL VARICES HAEMORRHAGE
     Dosage: 1 DF, DAILY DOSE
     Route: 042
     Dates: start: 20151206, end: 20151206
  6. GLUACETO 35 [Concomitant]
     Indication: OESOPHAGEAL VARICES HAEMORRHAGE
     Dosage: 500 ML, DAILY DOSE
     Route: 042
     Dates: start: 20151207, end: 20151207
  7. FERROUS SODIUM CITRATE [Concomitant]
     Active Substance: SODIUM FERROUS CITRATE
     Indication: IRON DEFICIENCY ANAEMIA
     Dosage: 100 MG, DAILY DOSE
     Route: 048
     Dates: start: 20151211, end: 20160114
  8. KANAMYCIN BANYU [Concomitant]
     Indication: PRODUCT USED FOR UNKNOWN INDICATION
     Dosage: 1000 MG, DAILY DOSE
     Route: 048
     Dates: start: 20150722, end: 20150902
  9. LAGNOS [Concomitant]
     Indication: PRODUCT USED FOR UNKNOWN INDICATION
     Dosage: 48.15 G, DAILY DOSE
     Route: 048
     Dates: end: 20151206
  10. SENNOSIDE A+B [Concomitant]
     Active Substance: SENNOSIDES A AND B
     Indication: PRODUCT USED FOR UNKNOWN INDICATION
     Dosage: 24 MG, DAILY DOSE
     Route: 048
     Dates: start: 20151021, end: 20151208
  11. SAXIZON [Concomitant]
     Active Substance: HYDROCORTISONE SODIUM SUCCINATE
     Dosage: 100 MG, DAILY DOSE
     Route: 042
     Dates: start: 20151119, end: 20151119
  12. SAXIZON [Concomitant]
     Active Substance: HYDROCORTISONE SODIUM SUCCINATE
     Dosage: 100 MG, DAILY DOSE
     Route: 042
     Dates: start: 20160104, end: 20160104
  13. PRIMPERAN [Concomitant]
     Active Substance: METOCLOPRAMIDE HYDROCHLORIDE
     Indication: OESOPHAGEAL VARICES HAEMORRHAGE
     Dosage: 1 DF, DAILY DOSE
     Route: 042
     Dates: start: 20151206, end: 20151206
  14. TOLVAPTAN [Suspect]
     Active Substance: TOLVAPTAN
     Dosage: 7.5 MG, QD, IN THE MORNING
     Route: 048
     Dates: start: 20151213, end: 20151215
  15. ALBUMIN [Concomitant]
     Active Substance: ALBUMIN HUMAN
     Dosage: 1 DF, DAILY DOSE
     Route: 042
     Dates: start: 20151120, end: 20151122
  16. ALBUMIN [Concomitant]
     Active Substance: ALBUMIN HUMAN
     Dosage: 1 DF, DAILY DOSE
     Route: 042
     Dates: start: 20160105, end: 20160107
  17. LASIX M [Concomitant]
     Active Substance: FUROSEMIDE
     Indication: FLUID RETENTION
     Dosage: 0.5 DF, DAILY DOSE
     Route: 042
     Dates: start: 20150724, end: 20150815
  18. LASIX M [Concomitant]
     Active Substance: FUROSEMIDE
     Dosage: 0.5 DF, UNK
     Route: 042
     Dates: start: 20150104, end: 20150104
  19. PIARLE [Concomitant]
     Indication: HEPATIC ENCEPHALOPATHY
     Dosage: 160 ML, DAILY DOSE
     Route: 051
     Dates: start: 20150925, end: 20151001
  20. CALONAL [Concomitant]
     Active Substance: ACETAMINOPHEN
     Indication: ABDOMINAL PAIN UPPER
     Dosage: 400 MG, DAILY DOSE
     Route: 048
     Dates: start: 20151009, end: 20151013
  21. SPIRONOLACTONE. [Concomitant]
     Active Substance: SPIRONOLACTONE
     Indication: FLUID RETENTION
     Dosage: 50 MG, DAILY DOSE
     Route: 048
     Dates: start: 20151201, end: 20160114
  22. ALDACTONE A [Concomitant]
     Active Substance: SPIRONOLACTONE
     Indication: FLUID RETENTION
     Dosage: 50 MG, DAILY DOSE
     Route: 048
     Dates: start: 20150722, end: 20151130
  23. MAGMITT [Concomitant]
     Active Substance: MAGNESIUM OXIDE
     Indication: PRODUCT USED FOR UNKNOWN INDICATION
     Dosage: 990 MG, DAILY DOSE
     Route: 048
     Dates: start: 20150722, end: 20150902
  24. SAXIZON [Concomitant]
     Active Substance: HYDROCORTISONE SODIUM SUCCINATE
     Dosage: 100 MG, DAILY DOSE
     Route: 042
     Dates: start: 20151228, end: 20151228
  25. AMINOLEBAN EN POWDER [Concomitant]
     Active Substance: AMINO ACIDS
     Indication: PRODUCT USED FOR UNKNOWN INDICATION
     Dosage: 50 G, DAILLY DOSE
     Route: 048
     Dates: start: 20151007, end: 20151206
  26. ALBUMIN [Concomitant]
     Active Substance: ALBUMIN HUMAN
     Dosage: 1 DF, DAILY DOSE
     Route: 042
     Dates: start: 20151007, end: 20151009
  27. LASIX M [Concomitant]
     Active Substance: FUROSEMIDE
     Indication: FLUID RETENTION
     Dosage: 40 MG, DAILY DOSE
     Route: 048
     Dates: start: 20150722, end: 20150924
  28. KANAMYCIN BANYU [Concomitant]
     Dosage: 1000 MG, DAILY DOSE
     Route: 048
     Dates: start: 20150928, end: 20151206
  29. PIARLE [Concomitant]
     Indication: PRODUCT USED FOR UNKNOWN INDICATION
     Dosage: 20.4 G, DAILY DOSE
     Route: 048
     Dates: start: 20150722, end: 20150805
  30. MIYA-BM [Concomitant]
     Active Substance: CLOSTRIDIUM BUTYRICUM SPORES STRAIN M-55
     Indication: PRODUCT USED FOR UNKNOWN INDICATION
     Dosage: 3 G, DAILY DOSE
     Route: 048
     Dates: start: 20150722, end: 20150902
  31. LASIX M [Concomitant]
     Active Substance: FUROSEMIDE
     Dosage: 0.5 DF, DAILY DOSE
     Route: 042
     Dates: start: 20151119, end: 20151122
  32. TSUMURA SHAKUYAKUKANZOUTOU [Concomitant]
     Indication: PRODUCT USED FOR UNKNOWN INDICATION
     Dosage: 7.5 G, DAILY DOSE
     Route: 048
     Dates: start: 20150818, end: 20150927
  33. SAXIZON [Concomitant]
     Active Substance: HYDROCORTISONE SODIUM SUCCINATE
     Indication: FLUID RETENTION
     Dosage: 300 MG, DAILY DOSE
     Route: 042
     Dates: start: 20150904, end: 20150904
  34. PASTARON [Concomitant]
     Active Substance: UREA
     Indication: ECZEMA ASTEATOTIC
     Dosage: 1 G, DAILY DOSE
     Route: 061
     Dates: start: 20151013
  35. OMEPRAZOLE SODIUM [Concomitant]
     Active Substance: OMEPRAZOLE SODIUM
     Dosage: 40 MG, DAILY DOSE
     Route: 042
     Dates: start: 20151207, end: 20151208
  36. TOLVAPTAN [Suspect]
     Active Substance: TOLVAPTAN
     Dosage: 7.5 MG, QD, IN THE MORNING
     Route: 048
     Dates: start: 20150731, end: 20151206
  37. L-CARTIN FF TABLETS 250 MG [Concomitant]
     Indication: PRODUCT USED FOR UNKNOWN INDICATION
     Dosage: 750 MG, DAILY DOSE
     Route: 048
     Dates: start: 20151111, end: 20151206
  38. JANUVIA [Concomitant]
     Active Substance: SITAGLIPTIN PHOSPHATE
     Indication: PRODUCT USED FOR UNKNOWN INDICATION
     Dosage: 50 MG, DAILY DOSE
     Route: 048
     Dates: start: 20150722, end: 20150902
  39. FEBURIC [Concomitant]
     Active Substance: FEBUXOSTAT
     Indication: PRODUCT USED FOR UNKNOWN INDICATION
     Dosage: 20 MG, DAILY DOSE
     Route: 048
     Dates: end: 20151206
  40. BUSCOPAN [Concomitant]
     Active Substance: BUTYLSCOPOLAMINE BROMIDE
     Indication: ABDOMINAL PAIN
     Dosage: 20 MG, DAILY DOSE
     Route: 048
     Dates: start: 20151217, end: 20151226
  41. TOLVAPTAN [Suspect]
     Active Substance: TOLVAPTAN
     Indication: FLUID RETENTION
     Dosage: 3.75 MG, QD, IN THE MORNING
     Route: 048
     Dates: start: 20150729, end: 20150730
  42. ALBUMIN [Concomitant]
     Active Substance: ALBUMIN HUMAN
     Indication: HYPOALBUMINAEMIA
     Dosage: 1 DF, DAILY DOSE
     Route: 042
     Dates: start: 20150725, end: 20150725
  43. AMINOLEBAN [Concomitant]
     Active Substance: AMINO ACIDS
     Indication: PRODUCT USED FOR UNKNOWN INDICATION
     Dosage: 200 ML, DAILY DOSE
     Route: 042
     Dates: start: 20150723, end: 20150815
  44. SENNOSIDE A+B [Concomitant]
     Active Substance: SENNOSIDES A AND B
     Indication: PRODUCT USED FOR UNKNOWN INDICATION
     Dosage: 24 MG, DAILY DOSE
     Route: 048
     Dates: start: 20150811, end: 20151020
  45. SAXIZON [Concomitant]
     Active Substance: HYDROCORTISONE SODIUM SUCCINATE
     Dosage: 300 MG, DAILY DOSE
     Route: 042
     Dates: start: 20150917, end: 20150917
  46. LOXOPROFEN SODIUM [Concomitant]
     Active Substance: LOXOPROFEN SODIUM
     Indication: ABDOMINAL PAIN UPPER
     Dosage: 60 MG, DAILY DOSE
     Route: 048
     Dates: start: 20151008, end: 20151012
  47. OMEPRAZOLE SODIUM [Concomitant]
     Active Substance: OMEPRAZOLE SODIUM
     Indication: OESOPHAGEAL VARICES HAEMORRHAGE
     Dosage: 20 MG, DAILY DOSE
     Route: 042
     Dates: start: 20151206, end: 20151206
  48. TOLVAPTAN [Suspect]
     Active Substance: TOLVAPTAN
     Dosage: 15 MG, QD, IN THE MORNING
     Route: 048
     Dates: start: 20151216, end: 20160114
  49. URSO DS [Concomitant]
     Indication: PRODUCT USED FOR UNKNOWN INDICATION
     Dosage: 600 MG, DAILY DOSE
     Route: 048
     Dates: start: 20150722, end: 20150902
  50. PIARLE [Concomitant]
     Dosage: 38.4 G, DAILY DOSE
     Route: 048
     Dates: start: 20150806, end: 20150902
  51. AMINOLEBAN [Concomitant]
     Active Substance: AMINO ACIDS
     Dosage: 200 ML, DAILY DOSE
     Route: 042
     Dates: start: 20150925, end: 20151013
  52. LASIX M [Concomitant]
     Active Substance: FUROSEMIDE
     Indication: PRODUCT USED FOR UNKNOWN INDICATION
     Dosage: 1 DF, DAILY DOSE
     Route: 042
     Dates: start: 20151007, end: 20151013
  53. SAXIZON [Concomitant]
     Active Substance: HYDROCORTISONE SODIUM SUCCINATE
     Dosage: 100 MG, DAILY DOSE
     Route: 042
     Dates: start: 20151221, end: 20151221
  54. GASTER [Concomitant]
     Active Substance: FAMOTIDINE
     Indication: OESOPHAGEAL VARICES HAEMORRHAGE
     Dosage: 1 DF, DAILY DOSE
     Route: 042
     Dates: start: 20151206, end: 20151206
  55. ARGAMATE [Concomitant]
     Active Substance: CALCIUM POLYSTYRENE SULFONATE
     Indication: HYPERKALAEMIA
     Dosage: 75 G, DAILY DOSE
     Route: 048
     Dates: start: 20151208, end: 20151209

REACTIONS (13)
  - Back pain [Recovered/Resolved]
  - Eczema asteatotic [Recovering/Resolving]
  - Abdominal pain [Recovering/Resolving]
  - Dehydration [Unknown]
  - Iron deficiency anaemia [Recovered/Resolved]
  - Hyperkalaemia [Recovered/Resolved]
  - Cough [Not Recovered/Not Resolved]
  - Carnitine deficiency [Recovering/Resolving]
  - Hepatic encephalopathy [Recovering/Resolving]
  - Oesophageal varices haemorrhage [Recovering/Resolving]
  - Cirrhosis alcoholic [Fatal]
  - Dysuria [Recovering/Resolving]
  - Abdominal pain upper [Recovering/Resolving]

NARRATIVE: CASE EVENT DATE: 20150817
